FAERS Safety Report 11216730 (Version 2)
Quarter: 2015Q3

REPORT INFORMATION
  Report Type: Spontaneous
  Country: US (occurrence: US)
  Receive Date: 20150624
  Receipt Date: 20150723
  Transmission Date: 20151125
  Serious: Yes (Other)
  Sender: FDA-Public Use
  Company Number: US-009507513-1506USA011502

PATIENT
  Age: 70 Year
  Sex: Male

DRUGS (2)
  1. ZOCOR [Suspect]
     Active Substance: SIMVASTATIN
     Dosage: 1 DF, HS
     Route: 048
     Dates: start: 20130429
  2. ALLOPURINOL. [Concomitant]
     Active Substance: ALLOPURINOL
     Dosage: 2 DF, QD
     Route: 048
     Dates: start: 20130429

REACTIONS (3)
  - Gastrointestinal carcinoma in situ [Unknown]
  - Malignant splenic neoplasm [Unknown]
  - Dehydration [Unknown]

NARRATIVE: CASE EVENT DATE: 20130429
